FAERS Safety Report 8560792-7 (Version None)
Quarter: 2012Q3

REPORT INFORMATION
  Report Type: 
  Country: None (occurrence: None)
  Receive Date: 20120802
  Receipt Date: 20120723
  Transmission Date: 20120928
  Serious: Yes (Other)
  Sender: FDA-Public Use
  Company Number: US-SAVIENT-2012S1000075

PATIENT
  Age: 51 Year
  Sex: Male
  Weight: 155.22 kg

DRUGS (19)
  1. LOSARTAN POTASSIUM [Concomitant]
     Indication: HYPERTENSION
  2. SOLU-MEDROL [Concomitant]
     Indication: PREMEDICATION
     Route: 042
     Dates: start: 20120720, end: 20120720
  3. NOVOLOG [Concomitant]
     Indication: DIABETES MELLITUS
     Route: 058
  4. KRYSTEXXA [Suspect]
     Indication: GOUT
     Route: 042
     Dates: start: 20120720, end: 20120720
  5. FUROSEMIDE [Concomitant]
  6. LEVOTHYROXINE SODIUM [Concomitant]
     Indication: HYPOTHYROIDISM
  7. KRYSTEXXA [Suspect]
     Route: 042
     Dates: start: 20120622, end: 20120622
  8. BENADRYL [Concomitant]
     Route: 042
     Dates: start: 20120622, end: 20120622
  9. SOLU-MEDROL [Concomitant]
     Route: 042
     Dates: start: 20120622, end: 20120622
  10. FUROSEMIDE [Concomitant]
     Indication: OEDEMA PERIPHERAL
  11. NIFEDIPINE [Concomitant]
     Indication: PRODUCT USED FOR UNKNOWN INDICATION
  12. LANTUS [Concomitant]
     Indication: DIABETES MELLITUS
     Route: 058
  13. BENADRYL [Concomitant]
     Route: 042
     Dates: start: 20120701, end: 20120701
  14. PREDNISONE [Concomitant]
     Indication: GOUT
  15. METOPROLOL TARTRATE [Concomitant]
     Indication: HYPERTENSION
  16. KRYSTEXXA [Suspect]
     Route: 042
     Dates: start: 20120701, end: 20120701
  17. BENADRYL [Concomitant]
     Indication: PREMEDICATION
     Route: 042
     Dates: start: 20120720, end: 20120720
  18. SOLU-MEDROL [Concomitant]
     Route: 042
     Dates: start: 20120701, end: 20120701
  19. ISOSORBIDE [Concomitant]
     Indication: PRODUCT USED FOR UNKNOWN INDICATION

REACTIONS (1)
  - CARDIAC FAILURE CONGESTIVE [None]
